FAERS Safety Report 9348003 (Version 1)
Quarter: 2013Q2

REPORT INFORMATION
  Report Type: Spontaneous
  Country: CN (occurrence: CN)
  Receive Date: 20130614
  Receipt Date: 20130614
  Transmission Date: 20140414
  Serious: Yes (Hospitalization)
  Sender: FDA-Public Use
  Company Number: CN-JNJFOC-20130602731

PATIENT
  Age: 55 Year
  Sex: Female
  Weight: 59 kg

DRUGS (3)
  1. TYLENOL COLD [Suspect]
     Indication: OROPHARYNGEAL PAIN
     Route: 048
     Dates: start: 20120421, end: 20120521
  2. TYLENOL COLD [Suspect]
     Indication: NASAL CONGESTION
     Route: 048
     Dates: start: 20120421, end: 20120521
  3. TYLENOL COLD [Suspect]
     Indication: NASOPHARYNGITIS
     Route: 048
     Dates: start: 20120421, end: 20120521

REACTIONS (2)
  - Erythema multiforme [Recovering/Resolving]
  - Pruritus [Recovering/Resolving]
